FAERS Safety Report 22267520 (Version 1)
Quarter: 2023Q2

REPORT INFORMATION
  Report Type: Spontaneous
  Country: ES (occurrence: ES)
  Receive Date: 20230429
  Receipt Date: 20230429
  Transmission Date: 20230721
  Serious: Yes (Death, Life-Threatening, Hospitalization, Other)
  Sender: FDA-Public Use
  Company Number: PHBS2015ES000446-IND

PATIENT
  Age: 61 Year
  Sex: Male

DRUGS (6)
  1. COLACE [Suspect]
     Active Substance: DOCUSATE SODIUM
     Indication: Multiple sclerosis
     Dosage: 0.5 MG, QD
     Route: 048
     Dates: start: 20110112, end: 20150122
  2. FENTANYL [Concomitant]
     Active Substance: FENTANYL
     Indication: Sciatica
     Dosage: 400 MG, Q12H
     Route: 048
     Dates: start: 20150216
  3. ACETAMINOPHEN [Concomitant]
     Active Substance: ACETAMINOPHEN
     Indication: Sciatica
     Dosage: 1000 MG, Q8H
     Route: 048
     Dates: start: 20150131
  4. TAPENTADOL HYDROCHLORIDE [Concomitant]
     Active Substance: TAPENTADOL HYDROCHLORIDE
     Indication: Sciatica
     Dosage: 50 MG, Q8H
     Route: 048
     Dates: start: 20150312
  5. PREGABALIN [Concomitant]
     Active Substance: PREGABALIN
     Indication: Sciatica
     Dosage: 75 MG, Q8H
     Route: 048
     Dates: start: 20150216
  6. PREGABALIN [Concomitant]
     Active Substance: PREGABALIN
     Dosage: 225 (150-0-75 ) MG / DAY, UNK
     Route: 048
     Dates: start: 20150615

REACTIONS (518)
  - Fasciola test positive [None]
  - Liver hernia [None]
  - Hypertrophic neuropathy [None]
  - Localised lipodystrophy [None]
  - Hypertrophic neuropathy [None]
  - Localised lipodystrophy [None]
  - Lumbar canal recalibration [None]
  - Capripox viral infection [None]
  - Capripoxvirus test [None]
  - Food allergy [None]
  - Lyme arthritis [None]
  - Lymphatic malformation [None]
  - Microscopic enteritis [None]
  - Megalencephaly [None]
  - Macrodontia [None]
  - Megalencephaly [None]
  - Macular degeneration [None]
  - Macular hypoplasia [None]
  - Macular pneumatic displacement [None]
  - Magnetic resonance imaging larynx [None]
  - Magnetic resonance imaging pelvic [None]
  - Mainzer-Saldino syndrome [None]
  - Tinea versicolour [None]
  - Mandibular arch expansion [None]
  - Marshall-White syndrome [None]
  - Maternal disease complicating pregnancy [None]
  - Maternal disease complicating pregnancy [None]
  - Maternal-foetal therapy [None]
  - Maternal-foetal therapy [None]
  - Maxillary expansion [None]
  - Arthropathy [None]
  - Purpura [None]
  - Ligament rupture [None]
  - Megalencephaly [None]
  - Congenital megaureter [None]
  - Mole excision [None]
  - Mole excision [None]
  - Menstrual clots [None]
  - Numb chin syndrome [None]
  - Mesenteric lymphadenitis [None]
  - Hip arthroplasty [None]
  - Rectal adenocarcinoma [None]
  - Methylmalonic acidaemia [None]
  - Methylmalonic acidaemia [None]
  - Lymphatic malformation [None]
  - Microdontia [None]
  - Laryngoscopy [None]
  - Microneedling [None]
  - Imperforate hymen [None]
  - Hydroxyapatite crystal deposition disease [None]
  - Minimally invasive osteosynthesis [None]
  - Food allergy [None]
  - Mitral valve dysplasia [None]
  - Congenital facial diplegia [None]
  - Oral appliance [None]
  - Congenital facial diplegia [None]
  - Moisture-associated skin damage [None]
  - Monkeypox immunisation [None]
  - Monkeypox immunisation [None]
  - Twin pregnancy [None]
  - Morel-Lavellee seroma [None]
  - Motor dysfunction [None]
  - Monkeypox [None]
  - Monkeypox immunisation [None]
  - Monkeypox immunisation [None]
  - Magnetic resonance imaging abdominal [None]
  - Sinusitis bacterial [None]
  - Mycobacterium tuberculosis complex test [None]
  - Muenke syndrome [None]
  - Tooth malformation [None]
  - Mycobacterium tuberculosis complex test [None]
  - Myelodysplastic syndrome [None]
  - Myelodysplastic syndrome [None]
  - Myelodysplastic syndrome with excess blasts [None]
  - Myelodysplastic syndrome with excess blasts [None]
  - Myelodysplastic syndrome with excess blasts [None]
  - Myelodysplastic syndrome with multilineage dysplasia [None]
  - Myelodysplastic syndrome with ringed sideroblasts [None]
  - Myelodysplastic syndrome with single lineage dysplasia [None]
  - Myofunctional therapy [None]
  - Myopic disc [None]
  - N-telopeptide abnormal [None]
  - N-telopeptide decreased [None]
  - N-telopeptide increased [None]
  - N-telopeptide normal [None]
  - N-telopeptide abnormal [None]
  - N-telopeptide increased [None]
  - N-telopeptide normal [None]
  - Nail dysplasia [None]
  - Oral appliance [None]
  - Nanoparticle toxicity [None]
  - Facial bones fracture [None]
  - Haematoma [None]
  - Haematoma [None]
  - Cyanosis neonatal [None]
  - Intensive care [None]
  - Neonatal pulmonary hypertension [None]
  - Sepsis neonatal [None]
  - Sepsis neonatal [None]
  - Neurodevelopmental delay [None]
  - Neurofibromatosis [None]
  - Neuroglial cyst [None]
  - Diabetic foot [None]
  - Diabetic foot [None]
  - Neurotrophic keratopathy [None]
  - Oncotype test [None]
  - Allergy to metals [None]
  - Nicotine allergy [None]
  - Nicotine dependence [None]
  - Nocturnal hypoventilation [None]
  - Pulpless tooth [None]
  - Cancer surgery [None]
  - Non-epileptic paroxysmal event [None]
  - Deafness congenital [None]
  - Hyperglycaemia [None]
  - Hyperglycaemia [None]
  - Bone growth stimulation [None]
  - Psychogenic blindness [None]
  - Acute myocardial infarction [None]
  - NTRK gene amplification [None]
  - NTRK gene fusion cancer [None]
  - NTRK gene fusion negative [None]
  - NTRK gene fusion positive [None]
  - NTRK gene fusion test [None]
  - Nucleic acid test positive [None]
  - Nucleic acid test positive [None]
  - Headache [None]
  - Food allergy [None]
  - Atelectasis [None]
  - Accident at work [None]
  - Oculogyric crisis [None]
  - Ocular vaccinia virus infection [None]
  - Oculocerebrocutaneous syndrome [None]
  - Tooth restoration [None]
  - Oesophageal compression [None]
  - Computerised tomogram oesophagus abnormal [None]
  - Oesophageal wall hypertrophy [None]
  - Oesophageal wall hypertrophy [None]
  - Oesophagram [None]
  - Oligodontia [None]
  - Omental haemorrhage [None]
  - Omental torsion [None]
  - Malocclusion [None]
  - Retinal collateral vessels [None]
  - Orthobiologic treatment [None]
  - Oral appliance [None]
  - Postural orthostatic tachycardia syndrome [None]
  - Bone giant cell tumour benign [None]
  - Internal fixation of fracture [None]
  - Otolaryngoscopy [None]
  - Otitis externa fungal [None]
  - Otosalpingitis [None]
  - Overgrowth syndrome [None]
  - Oxygen combining power decreased [None]
  - Trigger finger [None]
  - Trigger finger [None]
  - Clostridial infection [None]
  - Pain [None]
  - Oral appliance [None]
  - Palatal obturator [None]
  - Palatal perforation [None]
  - Gingivitis [None]
  - Prurigo of pregnancy [None]
  - Reaction to preservatives [None]
  - Odontogenic cyst [None]
  - Paramyotonia congenita [None]
  - Sinus operation [None]
  - Paraovarian cystectomy [None]
  - Prosthetic cardiac valve regurgitation [None]
  - Benign pleural neoplasm [None]
  - Atrial septal defect repair [None]
  - PCSK9 gene mutation [None]
  - Trigger finger [None]
  - Trigger finger [None]
  - Corneal degeneration [None]
  - Peritoneal washing [None]
  - Pemphigoid antibody panel [None]
  - Oral appliance [None]
  - Injury [None]
  - Staphylococcal bacteraemia [None]
  - Staphylococcal bacteraemia [None]
  - Penile cyst [None]
  - Penile pigmentation [None]
  - Cholecystostomy [None]
  - Tracheostomy [None]
  - Jejunostomy [None]
  - Renal stone removal [None]
  - Conjunctivitis allergic [None]
  - Perfume sensitivity [None]
  - Anal hypoaesthesia [None]
  - Anal rash [None]
  - Periapical disease [None]
  - Ascites [None]
  - Periodontic-endodontic disease [None]
  - Perioral dermatitis [None]
  - Peripheral blood mononuclear cell apheresis [None]
  - Nerve compression [None]
  - Pulmonary embolism [None]
  - Pulmonary artery stenosis congenital [None]
  - Vascular access site haematoma [None]
  - Vascular access site haematoma [None]
  - Peritoneal washing [None]
  - Perlman syndrome [None]
  - Taste disorder [None]
  - Pertussis-like syndrome [None]
  - Interstitial lung disease [None]
  - Cataract operation [None]
  - Stress echocardiogram [None]
  - Stress echocardiogram abnormal [None]
  - Stress echocardiogram normal [None]
  - Pharyngography [None]
  - Blister [None]
  - Specialist consultation [None]
  - Piercing associated complication [None]
  - Piezogenic papules [None]
  - Catheter placement [None]
  - Pinprick test [None]
  - Pituitary stalk interruption syndrome [None]
  - Placental oedema [None]
  - Placental oedema [None]
  - Placental oedema [None]
  - Placental oedema [None]
  - Internal fixation of fracture [None]
  - Internal fixation of fracture [None]
  - Platypnoea-orthodeoxia syndrome [None]
  - Platypnoea-orthodeoxia syndrome [None]
  - Streptococcus test [None]
  - Poirier-Bienvenu neurodevelopmental syndrome [None]
  - Poirier-Bienvenu neurodevelopmental syndrome [None]
  - Limb reconstructive surgery [None]
  - Limb reconstructive surgery [None]
  - Cauda equina syndrome [None]
  - Truancy [None]
  - Central venous catheterisation [None]
  - Oral appliance [None]
  - Foot deformity [None]
  - Positron emission tomogram prostate [None]
  - Failed back surgery syndrome [None]
  - Post procedural meningitis [None]
  - Post vaccination fever [None]
  - Vertebrobasilar stroke [None]
  - Vertebrobasilar stroke [None]
  - Posterior pituitary injection [None]
  - Post breast therapy pain syndrome [None]
  - Orthostatic hypotension [None]
  - Accessory auricle [None]
  - Angina unstable [None]
  - Lactation insufficiency [None]
  - Proctitis viral [None]
  - Product closure issue [None]
  - Product storage error [None]
  - Prostate massage [None]
  - Prostate sarcoma [None]
  - Positron emission tomogram prostate [None]
  - Prostate cancer stage 0 [None]
  - Prostatic artery embolisation [None]
  - Prostatic artery embolisation [None]
  - Prostate sarcoma [None]
  - Prosthetic cardiac valve regurgitation [None]
  - Prurigo of pregnancy [None]
  - Eczema asteatotic [None]
  - Pseudo Richter^s syndrome [None]
  - Pseudo-heparin resistance [None]
  - False positive investigation result [None]
  - Supraventricular tachycardia [None]
  - Psychiatric care [None]
  - Puerperal infection [None]
  - Pulmonary embolism [None]
  - Pulmonary artery stent insertion [None]
  - Pulmonary tractotomy [None]
  - Echocardiogram [None]
  - Ultrasound Doppler [None]
  - Punctoplasty [None]
  - Pupillary capture [None]
  - Sinusitis [None]
  - Culture [None]
  - Rabson Mendenhall syndrome [None]
  - Radiation induced encephalopathy [None]
  - Pharynx radiation injury [None]
  - Tracheal radiation injury [None]
  - Radical prostatectomy [None]
  - Microneedling [None]
  - Rapadilino syndrome [None]
  - Mycobacterium test [None]
  - Rectal neoplasm excision [None]
  - Paralysis recurrent laryngeal nerve [None]
  - Reduced parasympathetic activity [None]
  - Gout [None]
  - Orthobiologic treatment [None]
  - Dental prosthesis placement [None]
  - Rest regimen [None]
  - Restless leg augmentation syndrome [None]
  - Retinal degeneration [None]
  - Retinal vascular disorder [None]
  - Retinal vascular disorder [None]
  - Retinal vascular disorder [None]
  - Retinal vascular disorder [None]
  - Retrobulbar oedema [None]
  - Retrobulbar oedema [None]
  - Ureteral stent insertion [None]
  - Pharyngeal haematoma [None]
  - Pharyngeal haematoma [None]
  - Urinary bladder suspension [None]
  - Kyphosis [None]
  - Rhizobium radiobacter bacteraemia [None]
  - Rhizobium radiobacter bacteraemia [None]
  - Arthritis [None]
  - Food allergy [None]
  - Right-handedness [None]
  - Bronchoscopy [None]
  - Thoracic operation [None]
  - S100 protein increased [None]
  - Stress fracture [None]
  - Shoulder dystocia [None]
  - Female sterilisation [None]
  - Trabecular meshwork pigmentation [None]
  - Prostate sarcoma [None]
  - STING-associated vasculopathy with onset in infancy [None]
  - Nerve block [None]
  - Sclerosing epithelioid fibrosarcoma [None]
  - Lipogranuloma [None]
  - Scrotolith [None]
  - Lactation insufficiency [None]
  - Secretory breast carcinoma [None]
  - Aura [None]
  - Arthritis salmonella [None]
  - Serpentine supravenous hyperpigmentation [None]
  - Capripox viral infection [None]
  - Capripoxvirus test [None]
  - Prostatectomy [None]
  - Sinus congestion [None]
  - Cardiopulmonary exercise test [None]
  - Cardiopulmonary exercise test abnormal [None]
  - Cardiopulmonary exercise test normal [None]
  - Ligament sprain [None]
  - Skin laser therapy [None]
  - Skin resurfacing [None]
  - Sleep apnoea device implant [None]
  - Sleep apnoea device implant [None]
  - Hernia [None]
  - Social problem [None]
  - Social problem [None]
  - Transferrin receptor increased [None]
  - Speech latency [None]
  - Dural arteriovenous fistula [None]
  - Spinal cord hypoxia [None]
  - Spinal implantation [None]
  - Spinal stabilisation [None]
  - Spinal stabilisation [None]
  - Malignant splenic neoplasm [None]
  - Abdominal pain upper [None]
  - Tooth fracture [None]
  - Spondylocostal dysostosis [None]
  - Sporothrix test positive [None]
  - Sporothrix test [None]
  - Sporothrix test [None]
  - Sporothrix test positive [None]
  - Congenital elevation of scapula [None]
  - Airway secretion clearance therapy [None]
  - Squamous cell carcinoma [None]
  - Status dystonicus [None]
  - Nerve block [None]
  - Stenotrophomonas test [None]
  - Stenotrophomonas test [None]
  - Sternectomy [None]
  - STING-associated vasculopathy with onset in infancy [None]
  - Stoma closure [None]
  - Stoma site mucocutaneous separation [None]
  - Structural brain disorder [None]
  - Subependymal cyst [None]
  - Memory impairment [None]
  - Choroidal neovascularisation [None]
  - Subungual abscess [None]
  - Sun^s procedure [None]
  - Haematoma [None]
  - Haematoma [None]
  - Superoxide dismutase activity increased [None]
  - Suspected drug-induced liver injury [None]
  - Suspected drug-induced liver injury [None]
  - COVID-19 [None]
  - Syndrome Z [None]
  - Drug hypersensitivity [None]
  - Hypertension [None]
  - Congenital carnitine deficiency [None]
  - Electrocardiogram T wave abnormal [None]
  - Transcatheter arterial chemoembolisation [None]
  - Tooth malformation hereditary [None]
  - Secondary tic [None]
  - Drug resistance mutation [None]
  - Drug resistance mutation [None]
  - Therapeutic hypothermia [None]
  - Dysgeusia [None]
  - Dysgeusia [None]
  - Dacryolith [None]
  - Tear film instability [None]
  - Diathermy [None]
  - Oral appliance [None]
  - Temporal pulse increased [None]
  - Temporomandibular joint ankylosis [None]
  - Trigger points [None]
  - Testosterone deficiency syndrome [None]
  - Thrombomodulin [None]
  - Thyroidectomy [None]
  - Tibia fracture [None]
  - Tibia fracture [None]
  - Tessellated fundus [None]
  - Body tinea [None]
  - Tongue base mucosectomy [None]
  - Tongue erosion [None]
  - Oral hyperaesthesia [None]
  - Oral hyperaesthesia [None]
  - Tongue pigmentation [None]
  - Plicated tongue [None]
  - Tonsillolith [None]
  - Tooth concrescence [None]
  - Endodontic procedure [None]
  - Endodontic procedure [None]
  - Tooth fusion [None]
  - Tooth gemination [None]
  - Dental attrition [None]
  - Dental attrition [None]
  - Trabecular meshwork pigmentation [None]
  - Mitral valve repair [None]
  - Transferrin receptor increased [None]
  - Spinal fusion surgery [None]
  - Transient hepatic attenuation differences [None]
  - Neonatal pulmonary hypertension [None]
  - Oropharyngeal surgery [None]
  - Transpulmonary thermodilution [None]
  - Bladder catheterisation [None]
  - Bladder catheterisation [None]
  - Bladder calculus removal [None]
  - Depression [None]
  - Tricuspid valve thrombosis [None]
  - Trigeminal anaesthesia [None]
  - Trigeminal anaesthesia [None]
  - Dry needling [None]
  - Trigger toe [None]
  - Proteinuria [None]
  - Tumour biopsy [None]
  - Tumour biopsy [None]
  - Adenomatous polyposis coli [None]
  - Colitis ulcerative [None]
  - Magnetic therapy [None]
  - Ultrasound joint abnormal [None]
  - Ultrasound joint normal [None]
  - Ultrasound joint [None]
  - Joint injection [None]
  - Abnormal behaviour [None]
  - Abnormal behaviour [None]
  - Cerebrovascular accident [None]
  - Unexpected vaginal bleeding on hormonal IUD [None]
  - Unintended transduction of non-target tissues [None]
  - Female genital tract fistula [None]
  - Urinary squamous epithelial cells increased [None]
  - Urinary tract spasm [None]
  - Urine output fluctuation [None]
  - Urine potassium/creatinine ratio [None]
  - Mechanical urticaria [None]
  - Use of error-prone abbreviation [None]
  - Uterine cervix lymphoma [None]
  - Uterine leiomyoma calcification [None]
  - Uterine leiomyoma necrosis [None]
  - Uterine leiomyoma prolapse [None]
  - Vaccine interaction [None]
  - Vaccine interaction [None]
  - Vaccine interaction [None]
  - Diagnostic aspiration [None]
  - Vaginal cuff [None]
  - Aortic aneurysm repair [None]
  - Vascular access site pain [None]
  - Vascular access site coldness [None]
  - Vascular access site discomfort [None]
  - Vascular access site fibrosis [None]
  - Vascular access site hyperaesthesia [None]
  - Vascular access site hyperaesthesia [None]
  - Vascular access site discolouration [None]
  - Vascular access site induration [None]
  - Vascular access site extravasation [None]
  - Vascular access site injury [None]
  - Vascular access site irritation [None]
  - Vascular access site pruritus [None]
  - Vascular access site laceration [None]
  - Vascular access site mass [None]
  - Vascular access site hypoaesthesia [None]
  - Vascular access site pallor [None]
  - Vascular access site discomfort [None]
  - Vascular access site reaction [None]
  - Vascular access site erythema [None]
  - Vascular access site scar [None]
  - Vascular access site pain [None]
  - Vascular access site thrombosis [None]
  - Vascular access site warmth [None]
  - Vascular rings and slings [None]
  - Ventricular outflow tract dredging [None]
  - Ventricular extrasystoles [None]
  - Ventricular septal defect repair [None]
  - Cardiac ablation [None]
  - Bone hypertrophy [None]
  - Gastric stapling [None]
  - Cholera [None]
  - Viraemia [None]
  - Viraemia [None]
  - Viral vector shedding [None]
  - Goniosynechialysis [None]
  - Visual processing disorder [None]
  - Vitamin B complex deficiency [None]
  - Vitamin test [None]
  - Vocal cord haemorrhage [None]
  - Vocal cord haemorrhage [None]
  - Oral appliance [None]
  - Transient tachypnoea of the newborn [None]
  - Food allergy [None]
  - Whole body gamma measurement [None]
  - Acute myocardial infarction [None]
  - WNT4 deficiency [None]
  - Wound cellulitis [None]
  - Renal haemorrhage [None]
